FAERS Safety Report 17710462 (Version 1)
Quarter: 2020Q2

REPORT INFORMATION
  Report Type: Report from Study
  Country: FR (occurrence: FR)
  Receive Date: 20200427
  Receipt Date: 20200427
  Transmission Date: 20200714
  Serious: Yes (Other)
  Sender: FDA-Public Use
  Company Number: FR-ROCHE-2589489

PATIENT

DRUGS (41)
  1. TEGAFUR;URACIL [Suspect]
     Active Substance: TEGAFUR\URACIL
     Indication: METASTATIC NEOPLASM
     Route: 065
  2. ACTINOMYCIN D [Suspect]
     Active Substance: DACTINOMYCIN
     Indication: METASTATIC NEOPLASM
     Route: 065
  3. TRABECTEDIN [Suspect]
     Active Substance: TRABECTEDIN
     Indication: METASTATIC NEOPLASM
     Route: 065
  4. EPIRUBICIN [Suspect]
     Active Substance: EPIRUBICIN
     Indication: METASTATIC NEOPLASM
     Route: 065
  5. METHOTREXATE. [Suspect]
     Active Substance: METHOTREXATE
     Indication: METASTATIC NEOPLASM
     Route: 065
  6. BEVACIZUMAB. [Suspect]
     Active Substance: BEVACIZUMAB
     Indication: METASTATIC NEOPLASM
     Route: 065
  7. PANITUMUMAB [Suspect]
     Active Substance: PANITUMUMAB
     Indication: METASTATIC NEOPLASM
     Route: 065
  8. CRIZOTINIB [Suspect]
     Active Substance: CRIZOTINIB
     Indication: METASTATIC NEOPLASM
     Route: 065
  9. TEMOZOLOMIDE. [Suspect]
     Active Substance: TEMOZOLOMIDE
     Indication: METASTATIC NEOPLASM
     Route: 065
  10. CAPECITABINE. [Suspect]
     Active Substance: CAPECITABINE
     Indication: METASTATIC NEOPLASM
     Route: 048
  11. SORAFENIB [Suspect]
     Active Substance: SORAFENIB
     Indication: METASTATIC NEOPLASM
     Route: 065
  12. DACARBAZINE. [Suspect]
     Active Substance: DACARBAZINE
     Indication: METASTATIC NEOPLASM
     Route: 065
  13. MELPHALAN. [Suspect]
     Active Substance: MELPHALAN
     Indication: METASTATIC NEOPLASM
     Route: 065
  14. PEMETREXED. [Suspect]
     Active Substance: PEMETREXED
     Indication: METASTATIC NEOPLASM
     Route: 065
  15. ETOPOSIDE. [Suspect]
     Active Substance: ETOPOSIDE
     Indication: METASTATIC NEOPLASM
     Route: 065
  16. BLEOMYCIN [Suspect]
     Active Substance: BLEOMYCIN SULFATE
     Indication: METASTATIC NEOPLASM
     Route: 065
  17. VEMURAFENIB. [Suspect]
     Active Substance: VEMURAFENIB
     Indication: METASTATIC NEOPLASM
     Route: 065
  18. CARBOPLATIN. [Suspect]
     Active Substance: CARBOPLATIN
     Indication: METASTATIC NEOPLASM
     Route: 065
  19. PACLITAXEL. [Suspect]
     Active Substance: PACLITAXEL
     Indication: METASTATIC NEOPLASM
     Route: 065
  20. DOXORUBICIN [Suspect]
     Active Substance: DOXORUBICIN
     Indication: METASTATIC NEOPLASM
     Route: 065
  21. RALTITREXED [Suspect]
     Active Substance: RALTITREXED
     Indication: METASTATIC NEOPLASM
     Route: 065
  22. IRINOTECAN [Suspect]
     Active Substance: IRINOTECAN
     Indication: METASTATIC NEOPLASM
     Route: 065
  23. TEMSIROLIMUS. [Suspect]
     Active Substance: TEMSIROLIMUS
     Indication: METASTATIC NEOPLASM
     Route: 065
  24. FLUDARABINE [Suspect]
     Active Substance: FLUDARABINE PHOSPHATE
     Indication: METASTATIC NEOPLASM
     Route: 065
  25. TOPOTECAN [Suspect]
     Active Substance: TOPOTECAN HYDROCHLORIDE
     Indication: METASTATIC NEOPLASM
     Route: 065
  26. CETUXIMAB. [Suspect]
     Active Substance: CETUXIMAB
     Indication: METASTATIC NEOPLASM
     Route: 065
  27. SUNITINIB [Suspect]
     Active Substance: SUNITINIB
     Indication: METASTATIC NEOPLASM
     Route: 065
  28. 5-FLUOROURACIL [FLUOROURACIL] [Suspect]
     Active Substance: FLUOROURACIL
     Indication: METASTATIC NEOPLASM
     Route: 065
  29. DOCETAXEL. [Suspect]
     Active Substance: DOCETAXEL
     Indication: METASTATIC NEOPLASM
     Route: 065
  30. CYCLOPHOSPHAMIDE. [Suspect]
     Active Substance: CYCLOPHOSPHAMIDE
     Indication: METASTATIC NEOPLASM
     Route: 065
  31. IFOSFAMIDE. [Suspect]
     Active Substance: IFOSFAMIDE
     Indication: METASTATIC NEOPLASM
     Route: 065
  32. MITOMYCIN C [Suspect]
     Active Substance: MITOMYCIN
     Indication: METASTATIC NEOPLASM
     Route: 065
  33. GEMCITABINE. [Suspect]
     Active Substance: GEMCITABINE
     Indication: METASTATIC NEOPLASM
     Route: 065
  34. VINCRISTINE [Suspect]
     Active Substance: VINCRISTINE
     Indication: METASTATIC NEOPLASM
     Route: 065
  35. TRASTUZUMAB. [Suspect]
     Active Substance: TRASTUZUMAB
     Indication: METASTATIC NEOPLASM
     Route: 065
  36. CISPLATIN. [Suspect]
     Active Substance: CISPLATIN
     Indication: METASTATIC NEOPLASM
     Route: 065
  37. OXALIPLATIN. [Suspect]
     Active Substance: OXALIPLATIN
     Indication: METASTATIC NEOPLASM
     Route: 065
  38. BUSULFAN. [Suspect]
     Active Substance: BUSULFAN
     Indication: METASTATIC NEOPLASM
     Route: 065
  39. VINORELBINE [Suspect]
     Active Substance: VINORELBINE TARTRATE
     Indication: METASTATIC NEOPLASM
     Route: 065
  40. SOMATULINE [LANREOTIDE] [Suspect]
     Active Substance: LANREOTIDE
     Indication: METASTATIC NEOPLASM
     Route: 065
  41. CYCLOSPORINE. [Suspect]
     Active Substance: CYCLOSPORINE
     Indication: METASTATIC NEOPLASM
     Route: 065

REACTIONS (20)
  - Ear disorder [Unknown]
  - Mental disorder [Unknown]
  - Hyperthermia [Unknown]
  - Cardiac disorder [Unknown]
  - Metabolic disorder [Unknown]
  - Musculoskeletal disorder [Unknown]
  - Respiratory disorder [Unknown]
  - Infection [Unknown]
  - Asthenia [Unknown]
  - Immune system disorder [Unknown]
  - Lymphatic disorder [Unknown]
  - Renal disorder [Unknown]
  - Nervous system disorder [Unknown]
  - Gastrointestinal disorder [Unknown]
  - Thrombosis [Unknown]
  - Angiopathy [Unknown]
  - Eye disorder [Unknown]
  - Mucosal inflammation [Unknown]
  - Skin disorder [Unknown]
  - Hepatobiliary disease [Unknown]
